FAERS Safety Report 4362873-0 (Version None)
Quarter: 2004Q2

REPORT INFORMATION
  Report Type: 
  Country: None (occurrence: None)
  Receive Date: 20040518
  Receipt Date: 20040506
  Transmission Date: 20050107
  Serious: Yes (Hospitalization)
  Sender: FDA-Public Use
  Company Number: BEI-004265

PATIENT
  Age: 67 Year
  Sex: Female

DRUGS (9)
  1. IOPAMIDOL [Suspect]
     Indication: HEPATIC NEOPLASM MALIGNANT
     Dosage: 100 ML, IV
     Route: 042
     Dates: start: 20030318, end: 20030318
  2. IOPAMIDOL-300 [Suspect]
     Indication: THERAPEUTIC EMBOLISATION
     Dosage: 100 ML
     Route: 014
     Dates: start: 20030331, end: 20030331
  3. IOMERON-150 [Suspect]
     Indication: HEPATIC NEOPLASM MALIGNANT
     Dosage: 50 ML, IV
     Route: 042
     Dates: start: 20030331, end: 20030331
  4. METHYCOBAL (MECOBALAMIN) [Concomitant]
  5. LASIX [Concomitant]
  6. ALFAROL (ALFACALCIDOL) [Concomitant]
  7. STOGAR [Concomitant]
  8. ALDACTONE [Concomitant]
  9. ATELEC (CILNIDIPINE) [Concomitant]

REACTIONS (18)
  - ABDOMINAL PAIN [None]
  - BLOOD IMMUNOGLOBULIN G INCREASED [None]
  - CHOLECYSTITIS [None]
  - CONDITION AGGRAVATED [None]
  - CONTRAST MEDIA REACTION [None]
  - CRYOGLOBULINAEMIA [None]
  - FATIGUE [None]
  - GLOMERULONEPHRITIS MEMBRANOPROLIFERATIVE [None]
  - HAEMODIALYSIS [None]
  - HYPOCOMPLEMENTAEMIA [None]
  - OEDEMA PERIPHERAL [None]
  - PROTEINURIA [None]
  - PURPURA [None]
  - PYREXIA [None]
  - RENAL FAILURE [None]
  - RHEUMATOID FACTOR INCREASED [None]
  - RHEUMATOID FACTOR POSITIVE [None]
  - URINARY TRACT INFECTION [None]
